FAERS Safety Report 6535585-2 (Version None)
Quarter: 2009Q4

REPORT INFORMATION
  Report Type: 
  Country: None (occurrence: None)
  Receive Date: 20091228
  Receipt Date: 20090102
  Transmission Date: 20100525
  Serious: Yes (Hospitalization)
  Sender: FDA-Public Use
  Company Number: US-002323

PATIENT
  Age: 61 Year
  Sex: Male
  Weight: 87 kg

DRUGS (4)
  1. MULTIHANCE [Suspect]
     Indication: CARDIOMYOPATHY
     Dosage: 29ML INTRAVENOUS
     Route: 042
     Dates: start: 20081230, end: 20081230
  2. MULTIHANCE [Suspect]
     Indication: NUCLEAR MAGNETIC RESONANCE IMAGING
     Dosage: 29ML INTRAVENOUS
     Route: 042
     Dates: start: 20081230, end: 20081230
  3. MULTIHANCE [Suspect]
     Indication: SARCOIDOSIS
     Dosage: 29ML INTRAVENOUS
     Route: 042
     Dates: start: 20081230, end: 20081230
  4. GLUCOPHAGE [Concomitant]

REACTIONS (1)
  - ANAPHYLACTOID REACTION [None]
